FAERS Safety Report 7125535-2 (Version None)
Quarter: 2010Q4

REPORT INFORMATION
  Report Type: 
  Country: None (occurrence: None)
  Receive Date: 20101129
  Receipt Date: 20101115
  Transmission Date: 20110411
  Serious: Yes (Other)
  Sender: FDA-Public Use
  Company Number: B0681432A

PATIENT
  Sex: Female
  Weight: 73 kg

DRUGS (1)
  1. ALLI [Suspect]
     Dosage: 60MG PER DAY
     Route: 048
     Dates: start: 20101005, end: 20101016

REACTIONS (4)
  - ECZEMA [None]
  - GAMMA-GLUTAMYLTRANSFERASE INCREASED [None]
  - HEPATIC PAIN [None]
  - TRANSAMINASES INCREASED [None]
